FAERS Safety Report 7865821 (Version 2)
Quarter: 2013Q4

REPORT INFORMATION
  Report Type: Report from Study
  Country: IT (occurrence: IT)
  Receive Date: 20110322
  Receipt Date: 20131023
  Transmission Date: 20140711
  Serious: Yes (Death, Hospitalization)
  Sender: FDA-Public Use
  Company Number: IT-CELGENEUS-083-21880-11031569

PATIENT
  Age: 74 Year
  Sex: Female
  Weight: 54 kg

DRUGS (11)
  1. REVLIMID [Suspect]
     Indication: ACUTE MYELOID LEUKAEMIA
     Dosage: 10 MILLIGRAM
     Route: 048
     Dates: start: 20110512, end: 20110601
  2. CYTARABINE [Suspect]
     Indication: ACUTE MYELOID LEUKAEMIA
     Dosage: 40 MILLIGRAM
     Route: 058
     Dates: start: 20110512, end: 20110526
  3. ETOPOSIDE [Suspect]
     Indication: ACUTE MYELOID LEUKAEMIA
     Dosage: 100 MILLIGRAM
     Route: 041
     Dates: start: 20110603, end: 20110604
  4. ETOPOSIDE [Suspect]
     Dosage: 100 MILLIGRAM
     Route: 048
     Dates: start: 20110823, end: 20110831
  5. ETOPOSIDE [Suspect]
     Dosage: 100 MILLIGRAM
     Route: 048
     Dates: start: 20110913, end: 20110913
  6. ONCO CARBIDE [Concomitant]
     Indication: ACUTE MYELOID LEUKAEMIA
     Dosage: 2 TABLET
     Route: 065
  7. TRANEX [Concomitant]
     Indication: HAEMORRHAGE PROPHYLAXIS
     Dosage: 1500 MILLIGRAM
     Route: 065
     Dates: start: 20110512, end: 20110913
  8. ZYLORIC [Concomitant]
     Indication: PROPHYLAXIS
     Dosage: 300 MILLIGRAM
     Route: 065
  9. LANSOPRAZOLE [Concomitant]
     Indication: PROPHYLAXIS AGAINST GASTROINTESTINAL ULCER
     Dosage: 30 MILLIGRAM
     Route: 065
     Dates: start: 20110512, end: 20110913
  10. KLACID [Concomitant]
     Indication: ANTIBIOTIC THERAPY
     Dosage: 1 GRAM
     Route: 065
  11. LEVOFLOXACIN [Concomitant]
     Indication: ANTIBIOTIC THERAPY
     Dosage: 500 MILLIGRAM
     Route: 065

REACTIONS (3)
  - Septic shock [Fatal]
  - Acute myeloid leukaemia [Fatal]
  - No therapeutic response [Unknown]
